FAERS Safety Report 13998505 (Version 10)
Quarter: 2018Q4

REPORT INFORMATION
  Report Type: Report from Study
  Country: CO (occurrence: CO)
  Receive Date: 20170922
  Receipt Date: 20181031
  Transmission Date: 20190204
  Serious: Yes (Other)
  Sender: FDA-Public Use
  Company Number: CO-SA-2017SA171937

PATIENT
  Age: 45 Year
  Sex: Female

DRUGS (1)
  1. ALEMTUZUMAB [Suspect]
     Active Substance: ALEMTUZUMAB
     Indication: MULTIPLE SCLEROSIS
     Dosage: 12 MG,QD
     Route: 041
     Dates: start: 20170814, end: 20170818

REACTIONS (9)
  - Blood creatinine decreased [Recovered/Resolved]
  - Neutrophil count decreased [Recovered/Resolved]
  - Urinary tract infection bacterial [Recovered/Resolved]
  - Leukopenia [Recovered/Resolved]
  - Crystal urine present [Recovered/Resolved]
  - Leukocyturia [Recovered/Resolved]
  - Bacteriuria [Recovered/Resolved]
  - White blood cell count decreased [Recovered/Resolved]
  - Lymphocyte count decreased [Recovered/Resolved]

NARRATIVE: CASE EVENT DATE: 20170913
